FAERS Safety Report 9290149 (Version 2)
Quarter: 2013Q2

REPORT INFORMATION
  Report Type: Spontaneous
  Country: US (occurrence: None)
  Receive Date: 20130510
  Receipt Date: 20130514
  Transmission Date: 20140414
  Serious: Yes (Other)
  Sender: FDA-Public Use
  Company Number: JPI-P-031481

PATIENT
  Age: 67 Year
  Sex: Female

DRUGS (5)
  1. XYREM (500 MILLIGRAM/MILLILITERS, SOLUTION) (SODIUM OXYBATE) [Suspect]
     Indication: NARCOLEPSY
     Dosage: (2.25 GM, 2 IN 1D)
     Route: 048
     Dates: start: 20110224, end: 2011
  2. METOPROLOL [Concomitant]
  3. LISINOPRIL [Concomitant]
  4. LEVOTHYROXINE [Concomitant]
  5. HYDROCHLOROTHIAZIDE [Suspect]
     Indication: HYPERTENSION
     Dosage: 1 IN 1 D

REACTIONS (1)
  - Gout [None]
